FAERS Safety Report 13983079 (Version 4)
Quarter: 2018Q1

REPORT INFORMATION
  Report Type: Spontaneous
  Country: JP (occurrence: JP)
  Receive Date: 20170918
  Receipt Date: 20180110
  Transmission Date: 20180508
  Serious: Yes (Life-Threatening, Hospitalization, Other)
  Sender: FDA-Public Use
  Company Number: JP-PFIZER INC-2017398073

PATIENT
  Age: 77 Year
  Sex: Male
  Weight: 57 kg

DRUGS (7)
  1. CAMPTO [Suspect]
     Active Substance: IRINOTECAN
     Indication: RECTAL CANCER
     Dosage: 200 MG, 1X/DAY (200 MG/BODY (122.2 MG/M2))
     Route: 041
     Dates: start: 20170816, end: 20170816
  2. 5-FU [Concomitant]
     Active Substance: FLUOROURACIL
     Dosage: 500 MG, UNK (500 MG/BODY (305.4 MG/M2))THEN 3000 MG/BODY/D1-2 (1832.6 MG/M2/D1-2)
     Dates: start: 20170816, end: 20170816
  3. ALOXI [Concomitant]
     Active Substance: PALONOSETRON HYDROCHLORIDE
     Dosage: UNK
     Dates: start: 20170816, end: 20170816
  4. POLARAMINE [Concomitant]
     Active Substance: DEXCHLORPHENIRAMINE MALEATE
     Dosage: UNK
     Dates: start: 20170816, end: 20170816
  5. LEVOFOLINATE YAKULT [Suspect]
     Active Substance: LEVOLEUCOVORIN CALCIUM
     Indication: RECTAL CANCER
     Dosage: 250 MG, 1X/DAY 250 MG/BODY (152.7 MG/M2)
     Route: 041
     Dates: start: 20170816, end: 20170816
  6. ZALTRAP [Concomitant]
     Active Substance: ZIV-AFLIBERCEPT
     Dosage: 200 MG/BODY
     Dates: start: 20170816, end: 20170816
  7. DEXART [Concomitant]
     Active Substance: DEXAMETHASONE SODIUM PHOSPHATE
     Dosage: UNK
     Dates: start: 20170816, end: 20170816

REACTIONS (1)
  - Gastrointestinal haemorrhage [Recovered/Resolved]

NARRATIVE: CASE EVENT DATE: 20170902
